FAERS Safety Report 9029093 (Version 2)
Quarter: 2013Q1

REPORT INFORMATION
  Report Type: Spontaneous
  Country: US (occurrence: US)
  Receive Date: 20130122
  Receipt Date: 20130131
  Transmission Date: 20140127
  Serious: Yes (Congenital Anomaly, Other)
  Sender: FDA-Public Use
  Company Number: US-PFIZER INC-2013022381

PATIENT
  Sex: Female

DRUGS (3)
  1. ZOLOFT [Suspect]
     Indication: ANXIETY
     Dosage: UNK
     Route: 064
     Dates: start: 2003, end: 2007
  2. ZOLOFT [Suspect]
     Indication: DEPRESSION
  3. ZOLOFT [Suspect]
     Indication: AFFECTIVE DISORDER

REACTIONS (10)
  - Maternal exposure timing unspecified [Unknown]
  - Noonan syndrome [Unknown]
  - Deafness congenital [Unknown]
  - Pulmonary valve stenosis congenital [Unknown]
  - Hypertrophic cardiomyopathy [Unknown]
  - Cardiac failure congestive [Unknown]
  - Congenital nose malformation [Unknown]
  - Congenital anomaly [Unknown]
  - Developmental delay [Unknown]
  - Failure to thrive [Unknown]
